FAERS Safety Report 6537148-1 (Version None)
Quarter: 2010Q1

REPORT INFORMATION
  Report Type: 
  Country: None (occurrence: None)
  Receive Date: 20100114
  Receipt Date: 20100105
  Transmission Date: 20100710
  Serious: Yes (Hospitalization)
  Sender: FDA-Public Use
  Company Number: DE-ELI_LILLY_AND_COMPANY-DE201001000620

PATIENT
  Sex: Male
  Weight: 69.5 kg

DRUGS (6)
  1. PEMETREXED [Suspect]
     Indication: NON-SMALL CELL LUNG CANCER
     Dosage: 500 MG/M2, ON D1 EVERY 21 DAYS
     Route: 042
     Dates: start: 20091222, end: 20100105
  2. CISPLATIN [Suspect]
     Indication: NON-SMALL CELL LUNG CANCER
     Dosage: 75 MG/M2, ON D1 EVERY 21 DAYS
     Route: 042
     Dates: start: 20091222, end: 20100105
  3. FOLIC ACID [Concomitant]
     Indication: PROPHYLAXIS
     Dates: start: 20091215
  4. VIT B12 [Concomitant]
     Indication: PROPHYLAXIS
     Dates: start: 20091215, end: 20091215
  5. DEXAMETHASONE [Concomitant]
     Indication: PROPHYLAXIS
     Dates: start: 20091221, end: 20091223
  6. CLEXANE [Concomitant]
     Indication: DEEP VEIN THROMBOSIS
     Dates: start: 20091216

REACTIONS (1)
  - CEREBROVASCULAR ACCIDENT [None]
